FAERS Safety Report 7992346-5 (Version None)
Quarter: 2011Q4

REPORT INFORMATION
  Report Type: 
  Country: None (occurrence: None)
  Receive Date: 20111219
  Receipt Date: 20101230
  Transmission Date: 20120403
  Serious: No
  Sender: FDA-Public Use
  Company Number: US-ASTRAZENECA-2010SE61390

PATIENT
  Age: 69 Year
  Sex: Female

DRUGS (7)
  1. CRESTOR [Suspect]
     Indication: HYPERCHOLESTEROLAEMIA
     Route: 048
  2. ASPIRIN [Concomitant]
  3. CRESTOR [Suspect]
     Route: 048
  4. VITAMIN E [Concomitant]
  5. CRESTOR [Suspect]
     Route: 048
     Dates: end: 20090601
  6. CRESTOR [Suspect]
     Route: 048
     Dates: end: 20090601
  7. IMITREX [Concomitant]
     Indication: MIGRAINE

REACTIONS (10)
  - SWELLING [None]
  - BLOOD CHOLESTEROL INCREASED [None]
  - JOINT SWELLING [None]
  - NIGHT SWEATS [None]
  - ILEUS PARALYTIC [None]
  - OEDEMA PERIPHERAL [None]
  - PYREXIA [None]
  - ABDOMINAL PAIN UPPER [None]
  - ARTHRALGIA [None]
  - PAIN IN EXTREMITY [None]
